FAERS Safety Report 14253812 (Version 2)
Quarter: 2018Q1

REPORT INFORMATION
  Report Type: Spontaneous
  Country: CN (occurrence: CN)
  Receive Date: 20171206
  Receipt Date: 20180104
  Transmission Date: 20180508
  Serious: Yes (Other)
  Sender: FDA-Public Use
  Company Number: CN-TAKEDA-2017MPI010695

PATIENT
  Age: 54 Year
  Sex: Male

DRUGS (1)
  1. VELCADE [Suspect]
     Active Substance: BORTEZOMIB
     Indication: WALDENSTROM^S MACROGLOBULINAEMIA
     Dosage: 3.5 MG, UNK
     Route: 065
     Dates: start: 20171113

REACTIONS (7)
  - Mental disorder [Unknown]
  - Headache [Unknown]
  - Off label use [Unknown]
  - Dyspnoea [Unknown]
  - Renal impairment [Unknown]
  - Chest discomfort [Unknown]
  - Product use in unapproved indication [Unknown]
